FAERS Safety Report 12953459 (Version 3)
Quarter: 2017Q1

REPORT INFORMATION
  Report Type: Spontaneous
  Country: CO (occurrence: CO)
  Receive Date: 20161118
  Receipt Date: 20170308
  Transmission Date: 20170428
  Serious: Yes (Other)
  Sender: FDA-Public Use
  Company Number: CO-ASTRAZENECA-2016SF20980

PATIENT
  Sex: Female

DRUGS (11)
  1. GEMCITABINE [Suspect]
     Active Substance: GEMCITABINE\GEMCITABINE HYDROCHLORIDE
     Indication: BREAST CANCER FEMALE
     Route: 065
  2. FULVESTRANT [Concomitant]
     Active Substance: FULVESTRANT
     Dates: end: 201601
  3. DOCETAXEL. [Concomitant]
     Active Substance: DOCETAXEL
  4. ADRIAMYCIN [Suspect]
     Active Substance: DOXORUBICIN HYDROCHLORIDE
     Indication: BREAST CANCER FEMALE
     Route: 065
     Dates: start: 20131025
  5. TAMOXIFEN CITRATE. [Suspect]
     Active Substance: TAMOXIFEN CITRATE
     Route: 048
     Dates: start: 201411
  6. CYCLOPHOSPHAMIDE. [Suspect]
     Active Substance: CYCLOPHOSPHAMIDE
     Indication: BREAST CANCER FEMALE
     Route: 065
     Dates: start: 20131025
  7. CARBOPLATIN. [Suspect]
     Active Substance: CARBOPLATIN
     Indication: BREAST CANCER FEMALE
     Route: 065
  8. PACLITAXEL. [Suspect]
     Active Substance: PACLITAXEL
     Indication: BREAST CANCER FEMALE
     Route: 065
     Dates: start: 20140220
  9. ZOLEDRONIC ACID [Suspect]
     Active Substance: ZOLEDRONIC ACID
     Indication: BREAST CANCER FEMALE
     Route: 065
  10. GOSERELIN [Suspect]
     Active Substance: GOSERELIN
     Indication: BREAST CANCER FEMALE
     Route: 058
     Dates: start: 201411
  11. FLUOROURACIL. [Suspect]
     Active Substance: FLUOROURACIL
     Indication: BREAST CANCER FEMALE
     Route: 065
     Dates: start: 20131025

REACTIONS (6)
  - Malignant neoplasm progression [Unknown]
  - Thrombocytopenia [Unknown]
  - Spinal cord compression [Unknown]
  - Peripheral sensory neuropathy [Unknown]
  - Metastases to liver [Unknown]
  - Neutropenia [Unknown]
